FAERS Safety Report 8089947-5 (Version None)
Quarter: 2012Q1

REPORT INFORMATION
  Report Type: 
  Country: None (occurrence: None)
  Receive Date: 20120129
  Receipt Date: 20111021
  Transmission Date: 20120608
  Serious: No
  Sender: FDA-Public Use
  Company Number: US-ABBOTT-11P-163-0867386-00

PATIENT
  Age: 32 Year
  Sex: Female

DRUGS (5)
  1. ULTRAM [Concomitant]
     Indication: PRODUCT USED FOR UNKNOWN INDICATION
  2. PHENERGAN [Concomitant]
     Indication: PRODUCT USED FOR UNKNOWN INDICATION
  3. PRILOSEC [Concomitant]
     Indication: PRODUCT USED FOR UNKNOWN INDICATION
     Dosage: AT BEDTIME
  4. HUMIRA [Suspect]
     Indication: CROHN'S DISEASE
     Dosage: TODAY'S LOADING DOSE
     Dates: start: 20111021
  5. IMURAN [Concomitant]
     Indication: PRODUCT USED FOR UNKNOWN INDICATION

REACTIONS (5)
  - FORMICATION [None]
  - DYSGEUSIA [None]
  - INJECTION SITE PAIN [None]
  - PRURITUS [None]
  - INJECTION SITE PAPULE [None]
